FAERS Safety Report 8345169 (Version 3)
Quarter: 2013Q4

REPORT INFORMATION
  Report Type: Spontaneous
  Country: US (occurrence: US)
  Receive Date: 20120120
  Receipt Date: 20131021
  Transmission Date: 20140711
  Serious: Yes (Hospitalization, Other)
  Sender: FDA-Public Use
  Company Number: US-PFIZER INC-2012012885

PATIENT
  Sex: Female

DRUGS (2)
  1. XALATAN [Suspect]
     Dosage: UNK
  2. XALATAN [Suspect]
     Dosage: UNK
     Dates: start: 2013

REACTIONS (2)
  - Escherichia infection [Unknown]
  - Gait disturbance [Unknown]
